FAERS Safety Report 9557520 (Version 1)
Quarter: 2013Q3

REPORT INFORMATION
  Report Type: Spontaneous
  Country: US (occurrence: None)
  Receive Date: 20130726
  Receipt Date: 20130726
  Transmission Date: 20140515
  Serious: Yes (Hospitalization)
  Sender: FDA-Public Use
  Company Number: UTC-022532

PATIENT
  Age: 74 Year
  Sex: Male
  Weight: 76.36 kg

DRUGS (3)
  1. REMODULIN (10 MILLIGRAM/MILLILITERS, INJECTION FOR INFUSION) (TREPROSTINIL SODIUM) [Suspect]
     Indication: PULMONARY ARTERIAL HYPERTENSION
     Dosage: 126.72 UG/KG (0.088 UG/KG, 1 IN 1MIN), SUBCUTANEOUS
     Route: 058
     Dates: start: 20081211
  2. COUMADIN (WARFARIN SODIUM) [Concomitant]
  3. TRACLEER (BOSENTAN) [Concomitant]

REACTIONS (4)
  - Hypotension [None]
  - Incorrect drug administration rate [None]
  - Infusion site erythema [None]
  - Infusion site extravasation [None]
